FAERS Safety Report 24588415 (Version 1)
Quarter: 2024Q4

REPORT INFORMATION
  Report Type: Spontaneous
  Country: US (occurrence: None)
  Receive Date: 20241107
  Receipt Date: 20241107
  Transmission Date: 20250115
  Serious: Yes (Death, Hospitalization)
  Sender: Public
  Company Number: None

PATIENT
  Age: 51 Year
  Sex: Female
  Weight: 49.4 kg

DRUGS (1)
  1. CISPLATIN [Suspect]
     Active Substance: CISPLATIN
     Dates: end: 20231221

REACTIONS (6)
  - Dyspnoea [None]
  - Choking [None]
  - Retching [None]
  - Secretion discharge [None]
  - Hyponatraemia [None]
  - Malnutrition [None]

NARRATIVE: CASE EVENT DATE: 20240101
